FAERS Safety Report 6456190-2 (Version None)
Quarter: 2009Q4

REPORT INFORMATION
  Report Type: 
  Country: None (occurrence: None)
  Receive Date: 20091124
  Receipt Date: 20091124
  Transmission Date: 20100525
  Serious: Yes (Life-Threatening, Hospitalization)
  Sender: FDA-Public Use
  Company Number: None

PATIENT
  Sex: Female
  Weight: 47.6277 kg

DRUGS (1)
  1. BACTRIM [Suspect]
     Indication: SINUSITIS
     Dosage: 1 TAB TWICE DAILY PO
     Route: 048
     Dates: start: 20090422, end: 20090509

REACTIONS (3)
  - BLINDNESS TRANSIENT [None]
  - STEVENS-JOHNSON SYNDROME [None]
  - TOXIC EPIDERMAL NECROLYSIS [None]
